FAERS Safety Report 12864538 (Version 1)
Quarter: 2016Q4

REPORT INFORMATION
  Report Type: Spontaneous
  Country: US (occurrence: US)
  Receive Date: 20161020
  Receipt Date: 20161020
  Transmission Date: 20170207
  Serious: Yes (Hospitalization, Other)
  Sender: FDA-Public Use
  Company Number: US-APOTEX-2016AP013000

PATIENT
  Age: 74 Year
  Sex: Female

DRUGS (32)
  1. PROPOFOL. [Concomitant]
     Active Substance: PROPOFOL
     Indication: GENERAL ANAESTHESIA
     Dosage: 10MG/ML; 150MG
     Route: 042
  2. PROPOFOL. [Concomitant]
     Active Substance: PROPOFOL
     Dosage: 20MG/ML; 252MG
     Route: 042
  3. ROCURONIUM BROMIDE. [Concomitant]
     Active Substance: ROCURONIUM BROMIDE
     Indication: GENERAL ANAESTHESIA
     Dosage: 50 MG/5 ML; 20MG
     Route: 042
  4. LEVOTHYROXINE SODIUM. [Concomitant]
     Active Substance: LEVOTHYROXINE SODIUM
     Indication: PRODUCT USED FOR UNKNOWN INDICATION
     Dosage: 75MCG EVERY 24 HOUR
     Route: 065
  5. OMEPRAZOLE. [Concomitant]
     Active Substance: OMEPRAZOLE
     Indication: PRODUCT USED FOR UNKNOWN INDICATION
     Dosage: 40 MG, QD
     Route: 065
  6. POTASSIUM CHLORIDE. [Concomitant]
     Active Substance: POTASSIUM CHLORIDE
     Indication: PRODUCT USED FOR UNKNOWN INDICATION
     Dosage: 10 MEQ, BID
     Route: 065
  7. ALLOPURINOL. [Concomitant]
     Active Substance: ALLOPURINOL
     Indication: PRODUCT USED FOR UNKNOWN INDICATION
     Dosage: 100MG
     Route: 065
  8. ERGOCALCIFEROL. [Concomitant]
     Active Substance: ERGOCALCIFEROL
     Indication: PRODUCT USED FOR UNKNOWN INDICATION
     Dosage: UNK
     Route: 065
  9. ESTRADIOL. [Concomitant]
     Active Substance: ESTRADIOL
     Indication: PRODUCT USED FOR UNKNOWN INDICATION
     Dosage: 1 MG, QD
     Route: 065
  10. OLOPATADINE [Concomitant]
     Active Substance: OLOPATADINE
     Indication: PRODUCT USED FOR UNKNOWN INDICATION
     Dosage: UNK, BID
     Route: 045
  11. GLYCOPYRROLATE                     /00196202/ [Concomitant]
     Active Substance: GLYCOPYRROLATE
     Indication: GENERAL ANAESTHESIA
     Dosage: 0.2 MG/ML; 0.4MG
     Route: 042
  12. STALEVO [Concomitant]
     Active Substance: CARBIDOPA\ENTACAPONE\LEVODOPA
     Indication: PARKINSON^S DISEASE
     Dosage: UNK, QID
     Route: 065
  13. FLUOXETINE ORAL SOLUTION USP [Suspect]
     Active Substance: FLUOXETINE HYDROCHLORIDE
     Indication: DEPRESSION
     Dosage: 10 MG, QD
     Route: 065
  14. DULOXETINE HYDROCHLORIDE DELAYED-RELEASE CAPSULES [Interacting]
     Active Substance: DULOXETINE HYDROCHLORIDE
     Indication: ANXIETY
     Dosage: 60 MG, QD
     Route: 065
  15. FUROSEMIDE. [Concomitant]
     Active Substance: FUROSEMIDE
     Indication: PRODUCT USED FOR UNKNOWN INDICATION
     Dosage: UNK
     Route: 065
  16. ROSUVASTATIN. [Concomitant]
     Active Substance: ROSUVASTATIN
     Indication: PRODUCT USED FOR UNKNOWN INDICATION
     Dosage: EVERY 48 HOUR
     Route: 065
  17. METHYLENE BLUE. [Interacting]
     Active Substance: METHYLENE BLUE
     Indication: GENERAL ANAESTHESIA
  18. ONDANSETRON [Concomitant]
     Active Substance: ONDANSETRON
     Indication: GENERAL ANAESTHESIA
     Dosage: 2 MG/ML; 4MG
     Route: 042
  19. ASCORBIC ACID. [Concomitant]
     Active Substance: ASCORBIC ACID
     Indication: PRODUCT USED FOR UNKNOWN INDICATION
     Dosage: 500 MG, QD
     Route: 065
  20. LISINOPRIL. [Concomitant]
     Active Substance: LISINOPRIL
     Indication: PRODUCT USED FOR UNKNOWN INDICATION
     Dosage: 20 MG, QD
     Route: 065
  21. UBIQUINONE [Concomitant]
     Active Substance: UBIDECARENONE
     Indication: PRODUCT USED FOR UNKNOWN INDICATION
     Dosage: 300 MG, QD
     Route: 065
  22. MIDAZOLAM [Concomitant]
     Active Substance: MIDAZOLAM\MIDAZOLAM HYDROCHLORIDE
     Indication: GENERAL ANAESTHESIA
     Dosage: 1 MG/ML; 1MG
     Route: 042
  23. DEXAMETHASONE. [Concomitant]
     Active Substance: DEXAMETHASONE
     Indication: GENERAL ANAESTHESIA
     Dosage: 4 MG/ ML; 4MG
     Route: 042
  24. EPHEDRINE. [Concomitant]
     Active Substance: EPHEDRINE
     Indication: GENERAL ANAESTHESIA
     Dosage: 5 MG/ML; 10MG
     Route: 042
  25. NEOSTIGMINE [Concomitant]
     Active Substance: NEOSTIGMINE
     Indication: GENERAL ANAESTHESIA
     Dosage: 1:1000; 2MG
     Route: 042
  26. ASPIRIN                            /00002701/ [Concomitant]
     Active Substance: ASPIRIN
     Indication: PRODUCT USED FOR UNKNOWN INDICATION
     Dosage: 81 MG, QD
     Route: 065
  27. DICLOFENAC [Concomitant]
     Active Substance: DICLOFENAC
     Indication: PAIN
     Dosage: TWICE A DAY; WHEN NECESSARY
     Route: 061
  28. LEVOCETIRIZINE [Concomitant]
     Active Substance: LEVOCETIRIZINE
     Indication: PRODUCT USED FOR UNKNOWN INDICATION
     Dosage: 5 MG, UNK
     Route: 065
  29. METHYLENE BLUE. [Interacting]
     Active Substance: METHYLENE BLUE
     Indication: PROPHYLAXIS
     Dosage: 100MG OF 1%
     Route: 042
  30. FENTANYL. [Concomitant]
     Active Substance: FENTANYL
     Indication: GENERAL ANAESTHESIA
     Dosage: 50 MCG/ML; 25 MCG
     Route: 042
  31. OFIRMEV [Concomitant]
     Active Substance: ACETAMINOPHEN
     Indication: GENERAL ANAESTHESIA
     Dosage: 10 MG/ ML; 1G
     Route: 042
  32. ROPINIROLE. [Concomitant]
     Active Substance: ROPINIROLE
     Indication: RESTLESS LEGS SYNDROME
     Dosage: UNK, TID
     Route: 065

REACTIONS (2)
  - Drug interaction [Recovering/Resolving]
  - Serotonin syndrome [Recovering/Resolving]
